FAERS Safety Report 23078785 (Version 2)
Quarter: 2023Q4

REPORT INFORMATION
  Report Type: Spontaneous
  Country: US (occurrence: US)
  Receive Date: 20231018
  Receipt Date: 20231111
  Transmission Date: 20240110
  Serious: Yes (Other)
  Sender: FDA-Public Use
  Company Number: US-Accord-384374

PATIENT
  Age: 68 Year
  Sex: Male

DRUGS (3)
  1. DOCETAXEL [Suspect]
     Active Substance: DOCETAXEL\DOCETAXEL ANHYDROUS
     Indication: Breast cancer
     Dosage: FROM APPROXIMATELY 02-MAR-2022 THROUGH 15-JUN-2022, INJECTION CONCENTRATE
     Dates: start: 20220323, end: 20220615
  2. TRASTUZUMAB [Suspect]
     Active Substance: TRASTUZUMAB
     Indication: Breast cancer
     Dosage: NO OF CYCLE: 6
     Dates: start: 20220323, end: 20220615
  3. PERTUZUMAB [Suspect]
     Active Substance: PERTUZUMAB
     Indication: Breast cancer
     Dosage: NO OF CYCLE: 6
     Dates: start: 20220323, end: 20220615

REACTIONS (3)
  - Lacrimal structure injury [Unknown]
  - Dry eye [Not Recovered/Not Resolved]
  - Dacryostenosis acquired [Not Recovered/Not Resolved]

NARRATIVE: CASE EVENT DATE: 20220101
